FAERS Safety Report 6543247-0 (Version None)
Quarter: 2010Q1

REPORT INFORMATION
  Report Type: 
  Country: None (occurrence: None)
  Receive Date: 20100120
  Receipt Date: 20100115
  Transmission Date: 20100710
  Serious: Yes (Hospitalization, Other)
  Sender: FDA-Public Use
  Company Number: JP-SANOFI-AVENTIS-2009SA009170

PATIENT
  Age: 85 Year
  Sex: Female

DRUGS (5)
  1. PLAVIX [Suspect]
     Indication: CEREBRAL INFARCTION
     Route: 048
     Dates: start: 20091205, end: 20091214
  2. HYDROCHLOROTHIAZIDE/LOSARTAN POTASSIUM [Concomitant]
     Route: 048
     Dates: end: 20091214
  3. KERLONG [Concomitant]
     Route: 048
     Dates: end: 20091214
  4. PRAVASTATIN SODIUM [Concomitant]
     Route: 048
     Dates: end: 20091214
  5. ARICEPT [Concomitant]
     Route: 048
     Dates: end: 20091214

REACTIONS (5)
  - DIARRHOEA [None]
  - DUODENAL ULCER [None]
  - MELAENA [None]
  - OESOPHAGITIS [None]
  - VOMITING [None]
